FAERS Safety Report 19245742 (Version 1)
Quarter: 2021Q2

REPORT INFORMATION
  Report Type: Spontaneous
  Country: CN (occurrence: CN)
  Receive Date: 20210511
  Receipt Date: 20210511
  Transmission Date: 20210717
  Serious: Yes (Hospitalization)
  Sender: FDA-Public Use
  Company Number: CN-BAXTER-2021BAX010123

PATIENT
  Age: 51 Year
  Sex: Male

DRUGS (4)
  1. MEI AN [Suspect]
     Active Substance: MESNA
     Indication: ANGIOCENTRIC LYMPHOMA
     Route: 041
     Dates: start: 20210123, end: 20210125
  2. ETOPOSIDE. [Suspect]
     Active Substance: ETOPOSIDE
     Indication: ANGIOCENTRIC LYMPHOMA
     Dosage: TOTAL DOSE: 1380 MG, 20 MG/KG
     Route: 041
     Dates: start: 20210124, end: 20210125
  3. ENDOXAN [Suspect]
     Active Substance: CYCLOPHOSPHAMIDE
     Dosage: TOTAL DOSE OF ENDOXAN (23JAN2021 TO 24JAN2021): 6.9 G, 100 MG/KG
     Route: 041
     Dates: start: 20210124, end: 20210124
  4. ENDOXAN [Suspect]
     Active Substance: CYCLOPHOSPHAMIDE
     Indication: ANGIOCENTRIC LYMPHOMA
     Route: 041
     Dates: start: 20210123, end: 20210123

REACTIONS (2)
  - Haematochezia [Recovering/Resolving]
  - Platelet count decreased [Recovering/Resolving]

NARRATIVE: CASE EVENT DATE: 20210201
